FAERS Safety Report 5796993-0 (Version None)
Quarter: 2008Q2

REPORT INFORMATION
  Report Type: 
  Country: None (occurrence: None)
  Receive Date: 20080618
  Receipt Date: 20070618
  Transmission Date: 20081010
  Serious: Yes (Other)
  Sender: FDA-Public Use
  Company Number: 200711400US

PATIENT
  Age: 16 Year
  Sex: Male

DRUGS (6)
  1. LANTUS [Suspect]
     Indication: TYPE 1 DIABETES MELLITUS
     Dosage: 75 U QD
     Dates: start: 20070130
  2. LANTUS [Suspect]
     Indication: TYPE 1 DIABETES MELLITUS
     Dosage: 65 U QPM
     Dates: start: 20070101, end: 20070101
  3. LANTUS [Suspect]
     Indication: TYPE 1 DIABETES MELLITUS
     Dosage: 65 U QAM
     Dates: start: 20070201
  4. OPTICLIK GREY [Suspect]
     Indication: TYPE 1 DIABETES MELLITUS
     Dates: start: 20070130
  5. HUMALOG [Concomitant]
  6. LEVOTHYROXINE SODIUM [Concomitant]

REACTIONS (3)
  - BLOOD GLUCOSE DECREASED [None]
  - FEELING ABNORMAL [None]
  - HYPOGLYCAEMIA [None]
